FAERS Safety Report 11592954 (Version 3)
Quarter: 2015Q4

REPORT INFORMATION
  Report Type: Report from Study
  Country: JP (occurrence: JP)
  Receive Date: 20151005
  Receipt Date: 20151217
  Transmission Date: 20160304
  Serious: Yes (Hospitalization)
  Sender: FDA-Public Use
  Company Number: JP-009507513-1509JPN014618

PATIENT
  Age: 88 Year
  Sex: Female

DRUGS (16)
  1. DIAZOXIDE [Suspect]
     Active Substance: DIAZOXIDE
     Indication: HYPOGLYCAEMIA
     Dosage: 25 MG, QD, AFTER THE MEAL
     Route: 048
     Dates: start: 20140618, end: 20140618
  2. MICARDIS [Concomitant]
     Active Substance: TELMISARTAN
     Indication: HYPERTENSION
     Dosage: 40 MG, UNK;  DIVIDED DOSE FREQUENCY UNKNOWN
     Route: 048
  3. LENDORMIN [Concomitant]
     Active Substance: BROTIZOLAM
     Indication: PROPHYLAXIS
     Dosage: 0.25 MG, UNK; DIVIDED DOSE FREQUENCY UNKNOWN
     Route: 048
  4. ALENDRONATE SODIUM. [Concomitant]
     Active Substance: ALENDRONATE SODIUM
     Indication: OSTEOPOROSIS
     Dosage: 35 MG, QW (DIVIDED DOSE FREQUENCY UNKNOWN)
     Route: 048
  5. DIAZOXIDE [Suspect]
     Active Substance: DIAZOXIDE
     Dosage: 50 MG, QD, AFTER THE MEAL
     Route: 048
     Dates: start: 20140619, end: 20140624
  6. DIAZOXIDE [Suspect]
     Active Substance: DIAZOXIDE
     Dosage: 50 MG, BID, AFTER THE MEAL
     Route: 048
     Dates: start: 20140625, end: 20140908
  7. PURSENNID (SENNOSIDES) [Concomitant]
     Indication: CONSTIPATION
     Dosage: 12 MG, UNK;  DIVIDED DOSE FREQUENCY UNKNOWN
     Route: 048
  8. DIAZOXIDE [Suspect]
     Active Substance: DIAZOXIDE
     Dosage: 50 MG, BID, AFTER THE MEAL
     Route: 048
     Dates: start: 20150126
  9. CRESTOR [Concomitant]
     Active Substance: ROSUVASTATIN CALCIUM
     Indication: DYSLIPIDAEMIA
     Dosage: 2.5 MG, UNK DIVIDED DOSE FREQUENCY UNKNOWN. FORMULATION: POR
     Route: 048
  10. FUROSEMIDE. [Concomitant]
     Active Substance: FUROSEMIDE
     Indication: CARDIAC FAILURE
     Dosage: 20 MG, UNK; DIVIDED DOSE FREQUENCY UNKNOWN. FORMULATION: POR
     Route: 048
     Dates: start: 20140402
  11. DIAZOXIDE [Suspect]
     Active Substance: DIAZOXIDE
     Dosage: 25 MG, AT BED TIME
     Route: 048
     Dates: start: 20140918, end: 20140918
  12. DIAZOXIDE [Suspect]
     Active Substance: DIAZOXIDE
     Dosage: 50 MG,  AT BED TIME
     Route: 048
     Dates: start: 20140919, end: 20140926
  13. ALDACTONE A [Concomitant]
     Active Substance: SPIRONOLACTONE
     Indication: HYPERTENSION
     Dosage: 25 MG, UNK; DIVIDED DOSE FREQUENCY UNKNOWN. FORMULATION: POR
     Route: 048
     Dates: start: 20140327, end: 20151002
  14. TAKEPRON [Concomitant]
     Active Substance: LANSOPRAZOLE
     Indication: GASTROOESOPHAGEAL REFLUX DISEASE
     Dosage: 15 MG, UNK DIVIDED DOSE FREQUENCY UNKNOWN
     Route: 048
     Dates: start: 20140319
  15. DIAZOXIDE [Suspect]
     Active Substance: DIAZOXIDE
     Dosage: 50MG IN THE MORNING AND 25MG IN THE EVENING (AFTER THE MEAL)
     Route: 048
     Dates: start: 20140927, end: 20150125
  16. DEXTROSE. [Concomitant]
     Active Substance: DEXTROSE
     Dosage: 40 ML, UNK; 50% DIVIDED DOSE FREQUENCY UNKNOWN
     Route: 042
     Dates: start: 20140611, end: 20140611

REACTIONS (6)
  - Blood creatinine increased [Recovered/Resolved]
  - Hyperosmolar hyperglycaemic state [Recovered/Resolved]
  - Blood creatinine increased [Recovered/Resolved]
  - Blood urea increased [Recovered/Resolved]
  - Brain natriuretic peptide increased [Recovering/Resolving]
  - Blood urea increased [Recovered/Resolved]

NARRATIVE: CASE EVENT DATE: 20140623
